FAERS Safety Report 7078282-X (Version None)
Quarter: 2010Q4

REPORT INFORMATION
  Report Type: 
  Country: None (occurrence: None)
  Receive Date: 20101101
  Receipt Date: 20101101
  Transmission Date: 20110411
  Serious: Yes (Hospitalization)
  Sender: FDA-Public Use
  Company Number: None

PATIENT
  Sex: Female
  Weight: 58 kg

DRUGS (6)
  1. PEG-L-ASPARAGINASE (PEGASPARGASE, ONCOSPAR) [Suspect]
     Dosage: 3234 MG
     Dates: end: 20101004
  2. PREDNISONE [Suspect]
     Dosage: 1620 MG
     Dates: end: 20101018
  3. VINCRISTINE SULFATE [Suspect]
     Dosage: 6 MG
     Dates: end: 20101015
  4. CYTARABINE [Suspect]
     Dosage: 70 MG
     Dates: end: 20100920
  5. DAUNORUBICIN HCL [Suspect]
     Dosage: 114 MG
     Dates: end: 20101015
  6. METHOTREXATE [Suspect]
     Dosage: 30 MG
     Dates: end: 20101015

REACTIONS (15)
  - ANXIETY [None]
  - BLOOD CALCIUM DECREASED [None]
  - BLOOD PHOSPHORUS INCREASED [None]
  - CONVULSION [None]
  - DIZZINESS [None]
  - DYSMENORRHOEA [None]
  - FALL [None]
  - FLUID INTAKE REDUCED [None]
  - HEAD INJURY [None]
  - HYPERGLYCAEMIA [None]
  - LOSS OF CONSCIOUSNESS [None]
  - MENORRHAGIA [None]
  - MUSCULOSKELETAL STIFFNESS [None]
  - POOR VENOUS ACCESS [None]
  - SYNCOPE [None]
